FAERS Safety Report 6808026-5 (Version None)
Quarter: 2010Q2

REPORT INFORMATION
  Report Type: 
  Country: None (occurrence: None)
  Receive Date: 20100629
  Receipt Date: 20090424
  Transmission Date: 20101027
  Serious: No
  Sender: FDA-Public Use
  Company Number: US-PFIZER INC-2009192912

PATIENT
  Age: 42 Year
  Sex: Female
  Weight: 59 kg

DRUGS (1)
  1. CLEOCIN [Suspect]
     Indication: VAGINITIS BACTERIAL
     Dosage: 100 MG, 1X/DAY
     Route: 067
     Dates: start: 20090325, end: 20090327

REACTIONS (1)
  - DRUG INEFFECTIVE [None]
